FAERS Safety Report 6004578-6 (Version None)
Quarter: 2008Q4

REPORT INFORMATION
  Report Type: 
  Country: None (occurrence: None)
  Receive Date: 20081216
  Receipt Date: 20071207
  Transmission Date: 20090506
  Serious: No
  Sender: FDA-Public Use
  Company Number: US-BRISTOL-MYERS SQUIBB COMPANY-14008361

PATIENT
  Age: 65 Year
  Sex: Female
  Weight: 57 kg

DRUGS (5)
  1. PRAVACHOL [Suspect]
     Indication: BLOOD CHOLESTEROL INCREASED
     Route: 048
  2. BYETTA [Concomitant]
  3. GLUCOPHAGE [Concomitant]
  4. BONIVA [Concomitant]
  5. ASPIRIN [Concomitant]

REACTIONS (2)
  - DYSGEUSIA [None]
  - DYSPEPSIA [None]
